FAERS Safety Report 6159344-8 (Version None)
Quarter: 2009Q2

REPORT INFORMATION
  Report Type: 
  Country: None (occurrence: None)
  Receive Date: 20090415
  Receipt Date: 20090415
  Transmission Date: 20091009
  Serious: No
  Sender: FDA-Public Use
  Company Number: None

PATIENT
  Age: 45 Year
  Sex: Female
  Weight: 58.0604 kg

DRUGS (1)
  1. PROPRANOLOL HYDROCHLORIDE [Suspect]
     Indication: TREMOR
     Dosage: 80 MG ONCE A DAY PO, 2 DAYS
     Route: 048
     Dates: start: 20090412, end: 20090413

REACTIONS (3)
  - PAIN [None]
  - PRURITUS [None]
  - URTICARIA [None]
